FAERS Safety Report 7941467-1 (Version None)
Quarter: 2011Q4

REPORT INFORMATION
  Report Type: 
  Country: None (occurrence: None)
  Receive Date: 20111122
  Receipt Date: 20111115
  Transmission Date: 20120403
  Serious: Yes (Other)
  Sender: FDA-Public Use
  Company Number: 1000022460

PATIENT
  Age: 83 Year
  Sex: Female

DRUGS (9)
  1. YOKU-KAN-SAN (HERBAL EXTRACT NOS) (HERBAL EXTRAC NOS) [Concomitant]
  2. EVISTA [Concomitant]
  3. MEMANTINE HYDROCHLORIDE [Suspect]
     Indication: DEMENTIA ALZHEIMER'S TYPE
     Dosage: 15 MG (15 MG, 1 IN 1 D) ORAL
     Route: 048
     Dates: start: 20110625, end: 20110711
  4. BENIDIPINE (BENIDIPINE) (BENIDIPINE) [Concomitant]
  5. LIPITOR [Concomitant]
  6. MEMANTINE HYDROCHLORIDE [Suspect]
     Indication: DEMENTIA ALZHEIMER'S TYPE
     Dosage: 5 MG (5 MG, 1 IN 1 D), ORAL
     Route: 048
     Dates: start: 20110611, end: 20110617
  7. ARICEPT [Concomitant]
  8. AMLODIPINE [Concomitant]
  9. THYRADIN (LEVOTHYROXINE) (LEVOTHYROXINE) [Concomitant]

REACTIONS (4)
  - ALTERED STATE OF CONSCIOUSNESS [None]
  - SOMNOLENCE [None]
  - MALAISE [None]
  - ABNORMAL BEHAVIOUR [None]
